FAERS Safety Report 12352505 (Version 1)
Quarter: 2016Q2

REPORT INFORMATION
  Report Type: Spontaneous
  Country: IT (occurrence: IT)
  Receive Date: 20160510
  Receipt Date: 20160510
  Transmission Date: 20160815
  Serious: Yes (Hospitalization)
  Sender: FDA-Public Use
  Company Number: IT-ELI_LILLY_AND_COMPANY-IT201605001906

PATIENT
  Age: 76 Year
  Sex: Male

DRUGS (1)
  1. PRASUGREL HYDROCHLORIDE [Suspect]
     Active Substance: PRASUGREL HYDROCHLORIDE
     Indication: INFARCTION
     Dosage: UNK, UNKNOWN
     Route: 065

REACTIONS (2)
  - Respiratory failure [Unknown]
  - Respiratory tract haemorrhage [Recovered/Resolved]

NARRATIVE: CASE EVENT DATE: 20160114
